FAERS Safety Report 8798406 (Version 2)
Quarter: 2013Q1

REPORT INFORMATION
  Report Type: Spontaneous
  Country: JP (occurrence: JP)
  Receive Date: 20120920
  Receipt Date: 20130115
  Transmission Date: 20140127
  Serious: Yes (Life-Threatening, Other)
  Sender: FDA-Public Use
  Company Number: JP-ROCHE-1075161

PATIENT
  Sex: Male
  Weight: 58 kg

DRUGS (21)
  1. MIRCERA [Suspect]
     Indication: NEPHROGENIC ANAEMIA
     Route: 042
     Dates: start: 20120515, end: 201211
  2. MIRCERA [Suspect]
     Route: 042
     Dates: start: 201211
  3. NESP [Suspect]
     Indication: NEPHROGENIC ANAEMIA
     Dosage: IT IS 60?G/WEEK OF 40?G/WEEK.
     Route: 042
     Dates: start: 20120403, end: 20120508
  4. EPOGIN S [Suspect]
     Indication: NEPHROGENIC ANAEMIA
     Dosage: 3000 - 9000 UG/WEEK
     Route: 042
     Dates: start: 200806, end: 20111004
  5. EPOGIN S [Suspect]
     Indication: NEPHROGENIC ANAEMIA
     Route: 042
     Dates: start: 20111005, end: 20111110
  6. EPOGIN S [Suspect]
     Indication: NEPHROGENIC ANAEMIA
     Route: 042
     Dates: start: 20111110, end: 20120308
  7. EPOGIN S [Suspect]
     Indication: NEPHROGENIC ANAEMIA
     Route: 042
     Dates: start: 20120308, end: 20120403
  8. OMEPRAL [Suspect]
     Indication: GASTRIC ULCER
     Route: 048
     Dates: end: 20120517
  9. DIOVAN [Suspect]
     Indication: HYPERTENSION
     Route: 048
     Dates: end: 20120428
  10. PLAVIX [Suspect]
     Indication: ANGINA UNSTABLE
     Route: 048
     Dates: end: 20120517
  11. PURSENNID [Concomitant]
     Indication: CONSTIPATION
     Route: 048
  12. D-SORBITOL [Concomitant]
     Indication: CONSTIPATION
     Route: 048
  13. PHOSBLOCK [Concomitant]
     Indication: HYPERPHOSPHATAEMIA
     Route: 048
  14. ALMYLAR [Concomitant]
     Indication: ATRIAL FIBRILLATION
     Route: 048
     Dates: end: 20120517
  15. VILDAGLIPTIN [Concomitant]
     Indication: TYPE 2 DIABETES MELLITUS
     Dosage: DRUG: EQUA
     Route: 048
  16. PRECIPITATED CALCIUM CARBONATE [Concomitant]
     Indication: HYPERPHOSPHATAEMIA
     Route: 048
  17. OPALMON [Concomitant]
     Indication: ANGINA UNSTABLE
     Route: 048
     Dates: end: 20120428
  18. METHYCOBAL [Concomitant]
     Indication: NEUROPATHY PERIPHERAL
     Route: 048
     Dates: end: 20120428
  19. BAYASPIRIN [Concomitant]
     Indication: ANGINA UNSTABLE
     Route: 048
  20. CRESTOR [Concomitant]
     Indication: HYPERLIPIDAEMIA
     Route: 048
     Dates: end: 20120428
  21. ADALAT CR [Concomitant]
     Indication: HYPERTENSION
     Route: 048

REACTIONS (2)
  - Aplasia pure red cell [Recovered/Resolved]
  - Refractory cytopenia with unilineage dysplasia [Unknown]
